FAERS Safety Report 25751042 (Version 1)
Quarter: 2025Q3

REPORT INFORMATION
  Report Type: Spontaneous
  Country: CN (occurrence: CN)
  Receive Date: 20250902
  Receipt Date: 20250902
  Transmission Date: 20251021
  Serious: Yes (Other)
  Sender: NOVARTIS
  Company Number: CN-002147023-NVSC2025CN135395

PATIENT

DRUGS (2)
  1. SECUKINUMAB [Suspect]
     Active Substance: SECUKINUMAB
     Indication: Nail psoriasis
     Dosage: 300 MG, QW ( AT  WEEK 0, 1, 2, 3, AND 4)
     Route: 058
  2. SECUKINUMAB [Suspect]
     Active Substance: SECUKINUMAB
     Dosage: 300 MG, QMO (EACH TIME, OR DIVIDED INTO TWO INJECTIONS AT 150 MG EACH TIME.)
     Route: 058

REACTIONS (1)
  - Renal impairment [Unknown]
